FAERS Safety Report 8115707-2 (Version None)
Quarter: 2012Q1

REPORT INFORMATION
  Report Type: 
  Country: None (occurrence: None)
  Receive Date: 20120201
  Receipt Date: 20120117
  Transmission Date: 20120608
  Serious: Yes (Death)
  Sender: FDA-Public Use
  Company Number: FK201200197

PATIENT
  Age: 50 Year
  Sex: Female

DRUGS (2)
  1. CARBOPLATIN [Suspect]
     Indication: MALIGNANT PERITONEAL NEOPLASM
     Dosage: 360 MG/M2
  2. PACLITAXEL [Suspect]
     Indication: PRODUCT USED FOR UNKNOWN INDICATION

REACTIONS (14)
  - HYPOTENSION [None]
  - PLATELET COUNT DECREASED [None]
  - ALANINE AMINOTRANSFERASE INCREASED [None]
  - HYPOTHERMIA [None]
  - TACHYCARDIA [None]
  - NEUROTOXICITY [None]
  - ASPARTATE AMINOTRANSFERASE INCREASED [None]
  - LACTIC ACIDOSIS [None]
  - CONFUSIONAL STATE [None]
  - ABDOMINAL PAIN [None]
  - DYSPNOEA [None]
  - MITOCHONDRIAL CYTOPATHY [None]
  - ASTHENIA [None]
  - RESPIRATORY DISORDER [None]
